FAERS Safety Report 9610853 (Version 2)
Quarter: 2013Q4

REPORT INFORMATION
  Report Type: Report from Study
  Country: CO (occurrence: CO)
  Receive Date: 20131009
  Receipt Date: 20131015
  Transmission Date: 20140711
  Serious: No
  Sender: FDA-Public Use
  Company Number: CO-ROCHE-1286241

PATIENT
  Age: 51 Year
  Sex: Female
  Weight: 58 kg

DRUGS (8)
  1. RANIBIZUMAB [Suspect]
     Indication: RETINAL DETACHMENT
     Route: 050
     Dates: start: 20130916
  2. OMEPRAZOLE [Concomitant]
  3. LOSARTAN [Concomitant]
  4. METFORMIN [Concomitant]
  5. LOVASTATIN [Concomitant]
  6. INSULIN [Concomitant]
  7. CILOSTAZOL [Concomitant]
  8. PREGABALIN [Concomitant]

REACTIONS (3)
  - Eye swelling [Recovered/Resolved]
  - Eye irritation [Recovered/Resolved]
  - Ocular hyperaemia [Recovered/Resolved]
